FAERS Safety Report 19808481 (Version 1)
Quarter: 2021Q3

REPORT INFORMATION
  Report Type: Spontaneous
  Country: US (occurrence: US)
  Receive Date: 20210908
  Receipt Date: 20210908
  Transmission Date: 20211014
  Serious: No
  Sender: FDA-Public Use
  Company Number: None

PATIENT
  Age: 43 Year
  Sex: Female
  Weight: 48.15 kg

DRUGS (1)
  1. DEFINITY [Suspect]
     Active Substance: PERFLUTREN
     Indication: X-RAY WITH CONTRAST
     Route: 042

REACTIONS (3)
  - Dyspnoea [None]
  - Throat tightness [None]
  - Heart rate increased [None]

NARRATIVE: CASE EVENT DATE: 20210907
